FAERS Safety Report 25589980 (Version 2)
Quarter: 2025Q3

REPORT INFORMATION
  Report Type: Spontaneous
  Country: AU (occurrence: AU)
  Receive Date: 20250722
  Receipt Date: 20250902
  Transmission Date: 20251020
  Serious: Yes (Other)
  Sender: NOVO NORDISK
  Company Number: AU-NOVOPROD-1481517

PATIENT
  Age: 25 Year
  Sex: Female
  Weight: 161 kg

DRUGS (20)
  1. NOVORAPID [Suspect]
     Active Substance: INSULIN ASPART
     Indication: Gestational diabetes
     Route: 058
  2. ACTRAPID [Concomitant]
     Active Substance: INSULIN HUMAN
     Indication: Product used for unknown indication
  3. ENOXAPARIN [Concomitant]
     Active Substance: ENOXAPARIN
     Route: 058
  4. LEVONORGESTREL [Concomitant]
     Active Substance: LEVONORGESTREL
  5. METFORMIN [Concomitant]
     Active Substance: METFORMIN HYDROCHLORIDE
  6. METFORMIN [Concomitant]
     Active Substance: METFORMIN HYDROCHLORIDE
  7. TOUJEO [Concomitant]
     Active Substance: INSULIN GLARGINE
     Route: 058
  8. LABETALOL [Concomitant]
     Active Substance: LABETALOL
     Dosage: 200 MG
  9. CEPHALEXIN [Concomitant]
     Active Substance: CEPHALEXIN
  10. ENOXAPARIN SODIUM [Concomitant]
     Active Substance: ENOXAPARIN SODIUM
  11. INSULIN GLARGINE [Concomitant]
     Active Substance: INSULIN GLARGINE
     Route: 058
  12. PENICILLIN G [Concomitant]
     Active Substance: PENICILLIN G
     Dosage: 3 G, QD
  13. FAMOTIDINE [Concomitant]
     Active Substance: FAMOTIDINE
     Dosage: 20 MG
     Route: 048
  14. GENTAMICIN [Concomitant]
     Active Substance: GENTAMICIN
     Dosage: 450 MG, QD
     Route: 042
  15. NIFEDIPINE [Concomitant]
     Active Substance: NIFEDIPINE
     Dosage: 10 MG, QD
     Route: 048
  16. ACETAMINOPHEN\CODEINE PHOSPHATE [Concomitant]
     Active Substance: ACETAMINOPHEN\CODEINE PHOSPHATE
  17. NOVORAPID [Suspect]
     Active Substance: INSULIN ASPART
     Indication: Gestational diabetes
     Route: 058
  18. NOVORAPID [Suspect]
     Active Substance: INSULIN ASPART
     Dosage: 50 IU, TID
     Route: 058
  19. NOVORAPID [Suspect]
     Active Substance: INSULIN ASPART
     Indication: Gestational diabetes
     Dosage: 80 IU, TID
     Route: 058
  20. NOVORAPID [Suspect]
     Active Substance: INSULIN ASPART
     Dosage: 30 IU, TID
     Route: 058

REACTIONS (5)
  - Premature separation of placenta [Unknown]
  - Iatrogenic injury [Unknown]
  - Complication of delivery [Unknown]
  - Beta haemolytic streptococcal infection [Unknown]
  - Maternal exposure during pregnancy [Recovered/Resolved]
